FAERS Safety Report 7574426-1 (Version None)
Quarter: 2011Q2

REPORT INFORMATION
  Report Type: 
  Country: None (occurrence: None)
  Receive Date: 20110627
  Receipt Date: 20110624
  Transmission Date: 20111010
  Serious: Yes (Life-Threatening, Hospitalization, Other)
  Sender: FDA-Public Use
  Company Number: JP-B.I. PHARMACEUTICALS,INC./RIDGEFIELD-2011-BP-14027NB

PATIENT
  Sex: Male
  Weight: 54 kg

DRUGS (5)
  1. LEVOTHYROXINE SODIUM [Concomitant]
     Indication: HYPOTHYROIDISM
     Dosage: 50 MG
     Route: 048
     Dates: start: 20080717, end: 20110424
  2. PRADAXA [Suspect]
     Indication: ATRIAL FIBRILLATION
     Dosage: 220 MG
     Route: 048
     Dates: start: 20110406, end: 20110424
  3. ENALAPRIL MALEATE [Concomitant]
     Indication: BLOOD PRESSURE INCREASED
     Dosage: 5 MG
     Route: 048
     Dates: start: 20090820, end: 20110424
  4. ALOSENN [Concomitant]
     Indication: CONSTIPATION
     Dosage: 1 MG
     Route: 048
     Dates: start: 20030326, end: 20110424
  5. CANDESARTAN CILEXETIL [Concomitant]
     Indication: BLOOD PRESSURE INCREASED
     Dosage: 8 MG
     Route: 048
     Dates: start: 20030326, end: 20110429

REACTIONS (5)
  - PYREXIA [None]
  - PERICARDIAL HAEMORRHAGE [None]
  - RENAL IMPAIRMENT [None]
  - ANAEMIA [None]
  - CARDIAC TAMPONADE [None]
